FAERS Safety Report 12859783 (Version 6)
Quarter: 2017Q1

REPORT INFORMATION
  Report Type: Report from Study
  Country: JP (occurrence: JP)
  Receive Date: 20161018
  Receipt Date: 20170311
  Transmission Date: 20170428
  Serious: Yes (Life-Threatening, Other)
  Sender: FDA-Public Use
  Company Number: JP-AMGEN-JPNCT2016041551

PATIENT
  Age: 67 Year
  Sex: Female
  Weight: 60 kg

DRUGS (13)
  1. PANITUMUMAB [Suspect]
     Active Substance: PANITUMUMAB
     Dosage: 360 MG, Q2WK
     Route: 041
     Dates: start: 20160606, end: 20160921
  2. 5-FU [Suspect]
     Active Substance: FLUOROURACIL
     Dosage: 634 MG, Q2WK
     Route: 040
     Dates: start: 20160606, end: 20160921
  3. OXALIPLATIN. [Suspect]
     Active Substance: OXALIPLATIN
     Dosage: 62.9 MG/M2, Q2WEEKS
     Route: 041
     Dates: start: 20160905, end: 20160905
  4. CALCIUM LEVOFOLINATE [Concomitant]
     Active Substance: LEVOLEUCOVORIN CALCIUM
     Indication: COLON CANCER
     Dosage: 317 MG, Q2WEEKS
     Route: 041
     Dates: start: 20160215, end: 20160509
  5. PANITUMUMAB [Suspect]
     Active Substance: PANITUMUMAB
     Indication: COLON CANCER
     Dosage: 360 MG, Q2WK
     Route: 041
     Dates: start: 20160215, end: 20160509
  6. 5-FU [Suspect]
     Active Substance: FLUOROURACIL
     Dosage: 3804 MG, Q2WEEKS
     Route: 041
     Dates: start: 20160606, end: 20160921
  7. CALCIUM LEVOFOLINATE [Concomitant]
     Active Substance: LEVOLEUCOVORIN CALCIUM
     Dosage: UNK UNK, Q2WEEKS
     Route: 041
     Dates: start: 20160822, end: 20160921
  8. 5-FU [Suspect]
     Active Substance: FLUOROURACIL
     Indication: COLON CANCER
     Dosage: 634 MG, Q2WK
     Route: 040
     Dates: start: 20160215, end: 20160509
  9. OXALIPLATIN. [Suspect]
     Active Substance: OXALIPLATIN
     Dosage: 65 MG/M2, Q2WEEKS
     Route: 041
     Dates: start: 20160822, end: 20160822
  10. CALCIUM LEVOFOLINATE [Concomitant]
     Active Substance: LEVOLEUCOVORIN CALCIUM
     Dosage: 317 MG, Q2WEEKS
     Route: 041
     Dates: start: 20160606, end: 20160801
  11. OXALIPLATIN. [Suspect]
     Active Substance: OXALIPLATIN
     Indication: COLON CANCER
     Dosage: 135 MG, Q2WEEKS
     Route: 041
     Dates: start: 20160215, end: 20160509
  12. OXALIPLATIN. [Suspect]
     Active Substance: OXALIPLATIN
     Dosage: 135 MG, Q2WEEKS
     Route: 041
     Dates: start: 20160606, end: 20160801
  13. 5-FU [Suspect]
     Active Substance: FLUOROURACIL
     Dosage: 3804 MG, Q2WEEKS
     Route: 041
     Dates: start: 20160215, end: 20160509

REACTIONS (23)
  - Hypoalbuminaemia [Not Recovered/Not Resolved]
  - Neutrophil count decreased [Recovered/Resolved]
  - Inflammation [Recovered/Resolved]
  - C-reactive protein increased [Recovered/Resolved]
  - Decreased appetite [Not Recovered/Not Resolved]
  - Palpitations [Recovered/Resolved]
  - Blood alkaline phosphatase increased [Recovered/Resolved]
  - Decreased appetite [Recovered/Resolved]
  - Epistaxis [Recovered/Resolved]
  - Blood lactate dehydrogenase increased [Not Recovered/Not Resolved]
  - Rash [Not Recovered/Not Resolved]
  - Diarrhoea [Recovered/Resolved]
  - Peripheral sensory neuropathy [Not Recovered/Not Resolved]
  - Hypokalaemia [Recovered/Resolved]
  - Alopecia [Not Recovered/Not Resolved]
  - Paronychia [Not Recovered/Not Resolved]
  - Dehydration [Not Recovered/Not Resolved]
  - Pneumonia [Recovered/Resolved]
  - Oedema peripheral [Not Recovered/Not Resolved]
  - Dermatitis acneiform [Not Recovered/Not Resolved]
  - Hypomagnesaemia [Not Recovered/Not Resolved]
  - Dizziness [Recovered/Resolved]
  - Dehydration [Recovered/Resolved]

NARRATIVE: CASE EVENT DATE: 20161007
